FAERS Safety Report 10390537 (Version 1)
Quarter: 2014Q3

REPORT INFORMATION
  Report Type: Report from Study
  Country: CO (occurrence: CO)
  Receive Date: 20140818
  Receipt Date: 20140818
  Transmission Date: 20150326
  Serious: Yes (Hospitalization)
  Sender: FDA-Public Use
  Company Number: CO-ABBVIE-14P-036-1273027-00

PATIENT
  Age: 1 Month
  Sex: Female
  Weight: 4 kg

DRUGS (1)
  1. PALIVIZUMAB [Suspect]
     Active Substance: PALIVIZUMAB
     Indication: HEART DISEASE CONGENITAL
     Route: 030
     Dates: start: 20140411, end: 20140411

REACTIONS (4)
  - Gastrointestinal infection [Not Recovered/Not Resolved]
  - Use of accessory respiratory muscles [Not Recovered/Not Resolved]
  - Cough [Not Recovered/Not Resolved]
  - Bronchiolitis [Not Recovered/Not Resolved]

NARRATIVE: CASE EVENT DATE: 20140527
